FAERS Safety Report 16414390 (Version 1)
Quarter: 2019Q3

REPORT INFORMATION
  Report Type: Spontaneous
  Country: US (occurrence: US)
  Receive Date: 20190610
  Receipt Date: 20190610
  Transmission Date: 20191004
  Serious: Yes (Disabling)
  Sender: FDA-Public Use
  Company Number: None

PATIENT
  Age: 35 Year
  Sex: Female
  Weight: 78.75 kg

DRUGS (2)
  1. TESTOSTERONE CYPIONATE. [Suspect]
     Active Substance: TESTOSTERONE CYPIONATE
  2. AMLODIPINE/BENAZEPRIL [Suspect]
     Active Substance: AMLODIPINE BESYLATE\BENAZEPRIL HYDROCHLORIDE

REACTIONS (8)
  - Skin indentation [None]
  - Anxiety [None]
  - Pain [None]
  - Oedema peripheral [None]
  - Tremor [None]
  - Dyskinesia [None]
  - Exposure via body fluid [None]
  - Generalised oedema [None]

NARRATIVE: CASE EVENT DATE: 20190609
